FAERS Safety Report 12464149 (Version 1)
Quarter: 2016Q2

REPORT INFORMATION
  Report Type: Spontaneous
  Country: US (occurrence: None)
  Receive Date: 20160613
  Receipt Date: 20160613
  Transmission Date: 20160815
  Serious: Yes (Disabling, Other)
  Sender: FDA-Public Use
  Company Number: None

PATIENT
  Age: 59 Year
  Sex: Female
  Weight: 80.74 kg

DRUGS (7)
  1. NATURE-THROID [Concomitant]
     Active Substance: THYROID, PORCINE
  2. BUFFERED VITAMIN C [Concomitant]
  3. MINIVELLE [Suspect]
     Active Substance: ESTRADIOL
     Indication: MENOPAUSE
     Dosage: 8 PATCH(ES) TWICE A WEEK APPLIED AS MEDICATED PATCH TO SKIN
     Dates: start: 20160509, end: 20160602
  4. PROGESTERONE. [Concomitant]
     Active Substance: PROGESTERONE
  5. PROBIOTICS [Concomitant]
     Active Substance: PROBIOTICS NOS
  6. VITAMIN B COMPLEX [Concomitant]
     Active Substance: CYANOCOBALAMIN\DEXPANTHENOL\NIACINAMIDE\PYRIDOXINE HYDROCHLORIDE\RIBOFLAVIN 5^-PHOSPHATE SODIUM\THIAMINE HYDROCHLORIDE\VITAMIN B COMPLEX
  7. ESTRADIOL. [Concomitant]
     Active Substance: ESTRADIOL

REACTIONS (6)
  - Device adhesion issue [None]
  - Muscle spasms [None]
  - Drug level decreased [None]
  - Product lot number issue [None]
  - Haemorrhage [None]
  - Product substitution issue [None]

NARRATIVE: CASE EVENT DATE: 20160517
